FAERS Safety Report 7803677-3 (Version None)
Quarter: 2011Q4

REPORT INFORMATION
  Report Type: 
  Country: None (occurrence: None)
  Receive Date: 20111010
  Receipt Date: 20110930
  Transmission Date: 20120403
  Serious: Yes (Hospitalization, Other)
  Sender: FDA-Public Use
  Company Number: US-BIOGENIDEC-2010BI039363

PATIENT
  Age: 47 Year
  Sex: Female

DRUGS (3)
  1. AVONEX [Suspect]
     Indication: THROMBOSIS
     Route: 030
     Dates: start: 20090910
  2. COPAXONE [Concomitant]
     Indication: MULTIPLE SCLEROSIS
  3. NITROFURANTOIN [Concomitant]
     Indication: PROPHYLAXIS URINARY TRACT INFECTION
     Route: 048
     Dates: start: 20100101

REACTIONS (5)
  - MUSCULAR WEAKNESS [None]
  - GENITAL RASH [None]
  - ABASIA [None]
  - DEEP VEIN THROMBOSIS [None]
  - URINARY TRACT INFECTION [None]
